FAERS Safety Report 16106006 (Version 1)
Quarter: 2019Q1

REPORT INFORMATION
  Report Type: Spontaneous
  Country: DE (occurrence: DE)
  Receive Date: 20190322
  Receipt Date: 20190322
  Transmission Date: 20190418
  Serious: Yes (Congenital Anomaly, Other)
  Sender: FDA-Public Use
  Company Number: DE-PFIZER INC-2019119246

PATIENT
  Age: 1 Day
  Sex: Female
  Weight: 3.42 kg

DRUGS (7)
  1. RISPERDAL [Suspect]
     Active Substance: RISPERIDONE
     Indication: SCHIZOAFFECTIVE DISORDER
     Dosage: 2 MG, 1X/DAY (0. - 27.2. GESTATIONAL WEEK)
     Route: 064
  2. ARIPIPRAZOL [Suspect]
     Active Substance: ARIPIPRAZOLE
     Indication: SCHIZOAFFECTIVE DISORDER
     Dosage: UNK (0.4. - 0.4. GESTATIONAL WEEK)
     Route: 064
     Dates: start: 20171109, end: 20171109
  3. FOLIC ACID ABZ [Suspect]
     Active Substance: FOLIC ACID
     Indication: VITAMIN SUPPLEMENTATION
     Dosage: 5 MG, DAILY (27.5. - 27.5. GESTATIONAL WEEK)
     Route: 064
     Dates: start: 20180518, end: 20180518
  4. LEPONEX [Suspect]
     Active Substance: CLOZAPINE
     Indication: SCHIZOAFFECTIVE DISORDER
     Dosage: 225 MG, 1X/DAY (0. - 37.2. GESTATIONAL WEEK)
     Route: 064
     Dates: start: 20171105
  5. LEPONEX [Suspect]
     Active Substance: CLOZAPINE
     Dosage: 350 MG, 1X/DAY (0. - 37.2. GESTATIONAL WEEK)
     Route: 064
     Dates: end: 20180724
  6. HALOPERIDOL. [Suspect]
     Active Substance: HALOPERIDOL
     Indication: SCHIZOAFFECTIVE DISORDER
     Dosage: 6 MG, 1X/DAY (27.1. - 37.2. GESTATIONAL WEEK)
     Route: 064
     Dates: start: 20180514, end: 20180724
  7. SERTRALINE HCL [Suspect]
     Active Substance: SERTRALINE HYDROCHLORIDE
     Indication: SCHIZOAFFECTIVE DISORDER
     Dosage: UNK (0. - 12.4. GESTATIONAL WEEK)
     Route: 064
     Dates: start: 20171105, end: 20180201

REACTIONS (3)
  - Maternal exposure during pregnancy [Unknown]
  - Ventricular septal defect [Not Recovered/Not Resolved]
  - Exomphalos [Recovered/Resolved with Sequelae]

NARRATIVE: CASE EVENT DATE: 20171105
